FAERS Safety Report 8176792-5 (Version None)
Quarter: 2012Q1

REPORT INFORMATION
  Report Type: 
  Country: None (occurrence: None)
  Receive Date: 20120301
  Receipt Date: 20120112
  Transmission Date: 20120608
  Serious: Yes (Hospitalization)
  Sender: FDA-Public Use
  Company Number: CA-JNJFOC-20120210848

PATIENT
  Sex: Male
  Weight: 62.8 kg

DRUGS (3)
  1. REMICADE [Suspect]
     Indication: CROHN'S DISEASE
     Route: 042
     Dates: start: 20090201
  2. MAXERAN [Concomitant]
  3. ZOFRAN [Concomitant]
     Route: 065

REACTIONS (1)
  - VOMITING [None]
